FAERS Safety Report 12331751 (Version 1)
Quarter: 2016Q2

REPORT INFORMATION
  Report Type: Spontaneous
  Country: GB (occurrence: GB)
  Receive Date: 20160504
  Receipt Date: 20160504
  Transmission Date: 20160815
  Serious: Yes (Life-Threatening)
  Sender: FDA-Public Use
  Company Number: GB-TEVA-656111ACC

PATIENT
  Age: 66 Year
  Sex: Male

DRUGS (5)
  1. PROPOFOL. [Concomitant]
     Active Substance: PROPOFOL
  2. FENTANYL. [Concomitant]
     Active Substance: FENTANYL
  3. EPIDURAL [Concomitant]
  4. FLECAINIDE [Interacting]
     Active Substance: FLECAINIDE
     Indication: SUPRAVENTRICULAR TACHYCARDIA
     Dosage: UNKNOWN
     Route: 048
  5. AMLODIPINE [Suspect]
     Active Substance: AMLODIPINE BESYLATE
     Indication: HYPERTENSION
     Dosage: UNKNOWN
     Route: 048

REACTIONS (5)
  - Hypotension [Unknown]
  - Heart rate decreased [Unknown]
  - Pulseless electrical activity [Recovered/Resolved]
  - Drug interaction [Unknown]
  - Bradycardia [Unknown]

NARRATIVE: CASE EVENT DATE: 20160229
